FAERS Safety Report 24366861 (Version 1)
Quarter: 2024Q3

REPORT INFORMATION
  Report Type: Spontaneous
  Country: IT (occurrence: IT)
  Receive Date: 20240926
  Receipt Date: 20240926
  Transmission Date: 20241017
  Serious: Yes (Other)
  Sender: ITALFARMACO
  Company Number: IT-ITALFARMACO SPA-2162085

PATIENT
  Age: 69 Year
  Sex: Male
  Weight: 70 kg

DRUGS (13)
  1. TIGLUTIK [Suspect]
     Active Substance: RILUZOLE
     Indication: Amyotrophic lateral sclerosis
     Dates: start: 20240808, end: 20240828
  2. RIFAXIMIN [Concomitant]
     Active Substance: RIFAXIMIN
  3. ENOXAPARIN SODIUM [Concomitant]
     Active Substance: ENOXAPARIN SODIUM
  4. ACETAMINOPHEN [Concomitant]
     Active Substance: ACETAMINOPHEN
  5. TRAZODONE HYDROCHLORIDE [Concomitant]
     Active Substance: TRAZODONE HYDROCHLORIDE
  6. TOBRAMYCIN [Concomitant]
     Active Substance: TOBRAMYCIN\TOBRAMYCIN SULFATE
  7. LEVACECARNINE HYDROCHLORIDE [Concomitant]
     Active Substance: LEVACECARNINE HYDROCHLORIDE
  8. CHOLECALCIFEROL [Concomitant]
     Active Substance: CHOLECALCIFEROL
  9. LASIX [Concomitant]
     Active Substance: FUROSEMIDE
  10. CLOPIDOGREL [Concomitant]
     Active Substance: CLOPIDOGREL BISULFATE
  11. LANSOPRAZOLE [Concomitant]
     Active Substance: LANSOPRAZOLE
  12. METOPROLOL [Concomitant]
     Active Substance: METOPROLOL
  13. INSULIN ASPART [Concomitant]
     Active Substance: INSULIN ASPART

REACTIONS (6)
  - Tachycardia [Recovered/Resolved]
  - Hyperhidrosis [Recovered/Resolved]
  - Oxygen saturation decreased [Recovered/Resolved]
  - Dyspnoea [Recovered/Resolved]
  - Oliguria [Recovered/Resolved]
  - Urticaria [Recovering/Resolving]

NARRATIVE: CASE EVENT DATE: 20240828
